APPROVED DRUG PRODUCT: SUMATRIPTAN
Active Ingredient: SUMATRIPTAN
Strength: 20MG/SPRAY
Dosage Form/Route: SPRAY;NASAL
Application: A208967 | Product #001 | TE Code: AB
Applicant: REGCON HOLDINGS LLC
Approved: Feb 17, 2021 | RLD: No | RS: No | Type: RX